FAERS Safety Report 8852873 (Version 1)
Quarter: 2012Q4

REPORT INFORMATION
  Report Type: 
  Country: CA (occurrence: CA)
  Receive Date: 20121022
  Receipt Date: 20121022
  Transmission Date: 20130627
  Serious: Yes (Other)
  Sender: FDA-Public Use
  Company Number: PHHY2008CA044535

PATIENT

DRUGS (2)
  1. SANDOSTATIN LAR [Suspect]
     Dates: start: 20070212
  2. LASIX [Concomitant]

REACTIONS (3)
  - Blood pressure diastolic decreased [Unknown]
  - Anxiety [Unknown]
  - Abdominal distension [Unknown]
